FAERS Safety Report 5212967-2 (Version None)
Quarter: 2007Q1

REPORT INFORMATION
  Report Type: 
  Country: None (occurrence: None)
  Receive Date: 20070117
  Receipt Date: 20070117
  Transmission Date: 20070707
  Serious: Yes (Hospitalization)
  Sender: FDA-Public Use
  Company Number: None

PATIENT
  Age: 57 Year
  Sex: Male

DRUGS (10)
  1. IBUPROFEN [Suspect]
     Indication: PROSTATITIS
  2. ATENOLOL [Concomitant]
  3. DIAPER [Concomitant]
  4. DILTIAZEM HCL [Concomitant]
  5. FOSINOPRIL SODIUM [Concomitant]
  6. GABAPENTIN [Concomitant]
  7. TRIAMTERENE AND HYDROCHLOROTHIAZIDE [Concomitant]
  8. IBUPROFEN [Concomitant]
  9. NORTRIPTYLINE HCL [Concomitant]
  10. PAROXETINE HCL [Concomitant]

REACTIONS (5)
  - GASTRIC ULCER [None]
  - HAEMATOCRIT DECREASED [None]
  - MELAENA [None]
  - MENTAL STATUS CHANGES [None]
  - VEIN DISORDER [None]
